FAERS Safety Report 13562439 (Version 3)
Quarter: 2018Q4

REPORT INFORMATION
  Report Type: Spontaneous
  Country: DK (occurrence: DK)
  Receive Date: 20170519
  Receipt Date: 20180815
  Transmission Date: 20190204
  Serious: Yes (Hospitalization)
  Sender: FDA-Public Use
  Company Number: DK-ASTRAZENECA-2017SE52377

PATIENT
  Age: 63 Year
  Sex: Female
  Weight: 88 kg

DRUGS (6)
  1. PREDNISOLON DLF [Suspect]
     Active Substance: PREDNISOLONE
     Indication: PULMONARY FUNCTION TEST
     Dosage: STYRKE: 25 MG.
     Route: 048
     Dates: start: 20180406, end: 20180416
  2. SERTRALINE [Suspect]
     Active Substance: SERTRALINE HYDROCHLORIDE
     Indication: ANXIETY
     Route: 048
     Dates: start: 20180226, end: 20180622
  3. QUETIAPINE. [Suspect]
     Active Substance: QUETIAPINE
     Indication: BIPOLAR DISORDER
     Dosage: NON AZ PRODUCT, STYRKE: 25 MG, 12.5 MG, DAILY
     Route: 065
     Dates: start: 20180626, end: 20180702
  4. CISORDINOL [Suspect]
     Active Substance: ZUCLOPENTHIXOL
     Indication: PSYCHOTIC DISORDER
     Dosage: STYRKE: 2MG
     Route: 048
     Dates: start: 20091209, end: 20180701
  5. QUETIAPINE. [Suspect]
     Active Substance: QUETIAPINE
     Indication: BIPOLAR DISORDER
     Route: 065
     Dates: start: 2009, end: 2010
  6. DYMISTA [Suspect]
     Active Substance: AZELASTINE HYDROCHLORIDE\FLUTICASONE PROPIONATE
     Indication: RHINITIS ALLERGIC
     Route: 045
     Dates: start: 20180530, end: 20180709

REACTIONS (7)
  - Thinking abnormal [Recovering/Resolving]
  - Self-injurious ideation [Recovering/Resolving]
  - Hallucination, auditory [Recovering/Resolving]
  - Suicidal ideation [Recovering/Resolving]
  - Tachyphrenia [Recovering/Resolving]
  - Anxiety [Recovering/Resolving]
  - Nausea [Recovered/Resolved]

NARRATIVE: CASE EVENT DATE: 20180226
